FAERS Safety Report 19377156 (Version 1)
Quarter: 2021Q2

REPORT INFORMATION
  Report Type: Spontaneous
  Country: GB (occurrence: GB)
  Receive Date: 20210605
  Receipt Date: 20210605
  Transmission Date: 20210717
  Serious: Yes (Other)
  Sender: FDA-Public Use
  Company Number: GB-DRREDDYS-GER/UKI/21/0136187

PATIENT
  Sex: Female

DRUGS (1)
  1. OMEPRAZOLE 10 MG GASTRO?RESISTANT CAPSULES, HARD, DR. REDDY^S [Suspect]
     Active Substance: OMEPRAZOLE
     Indication: DYSPEPSIA
     Dosage: 20MG TWICE A DAY
     Route: 048
     Dates: start: 20210522, end: 20210523

REACTIONS (1)
  - Joint swelling [Recovering/Resolving]

NARRATIVE: CASE EVENT DATE: 20210522
